FAERS Safety Report 7690766-X (Version None)
Quarter: 2011Q3

REPORT INFORMATION
  Report Type: 
  Country: None (occurrence: None)
  Receive Date: 20110817
  Receipt Date: 20110817
  Transmission Date: 20111222
  Serious: Yes (Death)
  Sender: FDA-Public Use
  Company Number: None

PATIENT
  Sex: Male

DRUGS (8)
  1. LEVOTHYROXINE SODIUM [Concomitant]
  2. AFFINITOR 10MG [Suspect]
     Dosage: 10MG ONE QD PO
     Route: 048
     Dates: start: 20110801
  3. AFFINITOR 10MG [Suspect]
     Dosage: 10MG ONE QD PO
     Route: 048
     Dates: start: 20080401
  4. PRAVASTATIN [Concomitant]
  5. AMLODIPINE [Concomitant]
  6. PROTONIX [Concomitant]
  7. METOPROLOL [Concomitant]
  8. PREDNISONE TAB [Concomitant]

REACTIONS (1)
  - DEATH [None]
